FAERS Safety Report 6148412-2 (Version None)
Quarter: 2009Q2

REPORT INFORMATION
  Report Type: 
  Country: None (occurrence: None)
  Receive Date: 20090406
  Receipt Date: 20090406
  Transmission Date: 20091009
  Serious: Yes (Hospitalization)
  Sender: FDA-Public Use
  Company Number: None

PATIENT
  Age: 8 Month
  Sex: Male
  Weight: 9.18 kg

DRUGS (2)
  1. SYNAGIS [Suspect]
     Dosage: 15MG/KG Q MONTH IM
     Route: 030
     Dates: start: 20081010, end: 20090209
  2. SYNAGIS [Suspect]
     Dosage: 15MG/KG Q MONTH IM
     Route: 030

REACTIONS (1)
  - RESPIRATORY SYNCYTIAL VIRUS TEST POSITIVE [None]
